FAERS Safety Report 15934410 (Version 2)
Quarter: 2019Q1

REPORT INFORMATION
  Report Type: Spontaneous
  Country: US (occurrence: US)
  Receive Date: 20190207
  Receipt Date: 20190218
  Transmission Date: 20190417
  Serious: Yes (Other)
  Sender: FDA-Public Use
  Company Number: US-ASTRAZENECA-2018SF13870

PATIENT
  Age: 20213 Day
  Sex: Male

DRUGS (16)
  1. TRAMADOL HYDROCHLORIDE. [Concomitant]
     Active Substance: TRAMADOL HYDROCHLORIDE
     Indication: PAIN
     Dosage: TAKE 1 TABLET BY MOUTH THREE TIMES A DAY AS NEEDED
     Route: 048
     Dates: start: 20100316
  2. PRILOSEC OTC [Suspect]
     Active Substance: OMEPRAZOLE MAGNESIUM
     Route: 048
     Dates: start: 20030620, end: 20171231
  3. PREVACID [Suspect]
     Active Substance: LANSOPRAZOLE
     Dosage: TAKE 1 TABLET IN THE MORNING
     Route: 048
     Dates: start: 20000210
  4. PROTONIX [Suspect]
     Active Substance: PANTOPRAZOLE SODIUM
     Dosage: PANTOPRAZOLE-BY MOUTH EVERY DAY
     Route: 048
     Dates: start: 20091203
  5. METRONIDAZOLE. [Concomitant]
     Active Substance: METRONIDAZOLE
     Dosage: TAKE I TABLET TWO TIMES A DAY
     Dates: start: 20000421
  6. PROTONIX [Suspect]
     Active Substance: PANTOPRAZOLE SODIUM
     Route: 065
     Dates: start: 200002, end: 201003
  7. PROTONIX [Suspect]
     Active Substance: PANTOPRAZOLE SODIUM
     Route: 065
     Dates: start: 20091203, end: 20100316
  8. ZANTAC [Concomitant]
     Active Substance: RANITIDINE HYDROCHLORIDE
     Dosage: TAKE 1 TABLET AT BEDTIME
     Dates: start: 20000210
  9. PRILOSEC OTC [Suspect]
     Active Substance: OMEPRAZOLE MAGNESIUM
     Route: 048
     Dates: start: 200002, end: 201003
  10. PREVACID [Suspect]
     Active Substance: LANSOPRAZOLE
     Route: 065
     Dates: start: 200002, end: 201003
  11. METOCLOPRAMIDE. [Concomitant]
     Active Substance: METOCLOPRAMIDE
     Dosage: TAKE 1 TABLET 3 TIMES A DAY
     Dates: start: 20000229
  12. NORVASC [Concomitant]
     Active Substance: AMLODIPINE BESYLATE
     Dosage: TILKE L TABLET IN THE MORNING
     Dates: start: 20000421
  13. PREVACID [Suspect]
     Active Substance: LANSOPRAZOLE
     Route: 065
     Dates: start: 20000210, end: 20001006
  14. AMOXICILLIN. [Concomitant]
     Active Substance: AMOXICILLIN
     Dosage: TAKE 1 CAPSULE 2 TIMES A DAY
     Dates: start: 20000121
  15. ACYCLOVIR. [Concomitant]
     Active Substance: ACYCLOVIR
     Dosage: BY MOUTH TWICE A DAY
     Route: 048
     Dates: start: 20091203
  16. HYDROCHLOROTHIAZIDE. [Concomitant]
     Active Substance: HYDROCHLOROTHIAZIDE
     Dosage: BY MOUTH EVERY MORNING
     Route: 048
     Dates: start: 20091203

REACTIONS (2)
  - Renal injury [Unknown]
  - Chronic kidney disease [Unknown]

NARRATIVE: CASE EVENT DATE: 20100326
